FAERS Safety Report 8425075-4 (Version None)
Quarter: 2012Q2

REPORT INFORMATION
  Report Type: 
  Country: None (occurrence: None)
  Receive Date: 20120605
  Receipt Date: 20120605
  Transmission Date: 20120825
  Serious: Yes (Other)
  Sender: FDA-Public Use
  Company Number: None

PATIENT
  Age: 57 Year
  Sex: Female
  Weight: 90.7194 kg

DRUGS (4)
  1. PATADAY [Suspect]
     Indication: EYE ALLERGY
     Dosage: 1 DROP 1X DAILY
     Route: 047
     Dates: start: 20120518
  2. PATADAY [Suspect]
     Indication: EYE ALLERGY
     Dosage: 1 DROP 1X DAILY
     Route: 047
     Dates: start: 20120521
  3. PATADAY [Suspect]
     Indication: EYE ALLERGY
     Dosage: 1 DROP 1X DAILY
     Route: 047
     Dates: start: 20120520
  4. PATADAY [Suspect]
     Indication: EYE ALLERGY
     Dosage: 1 DROP 1X DAILY
     Route: 047
     Dates: start: 20120519

REACTIONS (8)
  - LYMPHADENOPATHY [None]
  - THROAT IRRITATION [None]
  - HEADACHE [None]
  - INFLUENZA LIKE ILLNESS [None]
  - DYSPHAGIA [None]
  - COUGH [None]
  - BACK PAIN [None]
  - OROPHARYNGEAL PAIN [None]
